FAERS Safety Report 23054135 (Version 1)
Quarter: 2023Q4

REPORT INFORMATION
  Report Type: Spontaneous
  Country: US (occurrence: None)
  Receive Date: 20231010
  Receipt Date: 20231010
  Transmission Date: 20240109
  Serious: Yes (Other)
  Sender: FDA-Public Use
  Company Number: None

PATIENT
  Age: 32 Year
  Sex: Female
  Weight: 63 kg

DRUGS (1)
  1. QELBREE [Suspect]
     Active Substance: VILOXAZINE HYDROCHLORIDE
     Indication: Attention deficit hyperactivity disorder
     Dosage: OTHER QUANTITY : 1 CAPSULE(S);?
     Route: 048
     Dates: start: 20230929, end: 20231006

REACTIONS (7)
  - Drug ineffective [None]
  - Fatigue [None]
  - Migraine [None]
  - Vomiting [None]
  - Neck pain [None]
  - Withdrawal syndrome [None]
  - Fatigue [None]

NARRATIVE: CASE EVENT DATE: 20231008
